FAERS Safety Report 5933889-5 (Version None)
Quarter: 2008Q4

REPORT INFORMATION
  Report Type: 
  Country: None (occurrence: None)
  Receive Date: 20081029
  Receipt Date: 20081023
  Transmission Date: 20090506
  Serious: Yes (Death)
  Sender: FDA-Public Use
  Company Number: IT-TEVA-179407ISR

PATIENT
  Sex: Female

DRUGS (5)
  1. PACLITAXEL [Suspect]
     Indication: BREAST CANCER METASTATIC
     Route: 042
     Dates: start: 20080917, end: 20081009
  2. DEXAMETHASONE SODIUM PHOSPHATE [Concomitant]
     Indication: PREMEDICATION
     Route: 042
  3. METOCLOPRAMIDE [Concomitant]
     Indication: PREMEDICATION
     Route: 042
  4. RANITIDINE HYDROCHLORIDE [Concomitant]
     Indication: PREMEDICATION
     Route: 042
  5. CHLORPHENIRAMINE MALEATE [Concomitant]
     Indication: PREMEDICATION
     Route: 030

REACTIONS (1)
  - ACUTE PULMONARY OEDEMA [None]
